FAERS Safety Report 8361992-1 (Version None)
Quarter: 2012Q2

REPORT INFORMATION
  Report Type: 
  Country: None (occurrence: None)
  Receive Date: 20120515
  Receipt Date: 20120510
  Transmission Date: 20120825
  Serious: Yes (Hospitalization)
  Sender: FDA-Public Use
  Company Number: US-B.I. PHARMACEUTICALS,INC./RIDGEFIELD-2012-BP-10538BP

PATIENT
  Sex: Male

DRUGS (2)
  1. OXYGEN [Concomitant]
     Indication: EMPHYSEMA
  2. PRADAXA [Suspect]
     Indication: ATRIAL FIBRILLATION
     Dosage: 300 MG
     Route: 048
     Dates: start: 20110520, end: 20110620

REACTIONS (1)
  - GASTROINTESTINAL HAEMORRHAGE [None]
